FAERS Safety Report 16188857 (Version 1)
Quarter: 2019Q2

REPORT INFORMATION
  Report Type: Spontaneous
  Country: US (occurrence: US)
  Receive Date: 20190412
  Receipt Date: 20190412
  Transmission Date: 20190711
  Serious: No
  Sender: FDA-Public Use
  Company Number: US-TEVA-2018-US-943457

PATIENT
  Age: 2 Week
  Sex: Male
  Weight: 1.21 kg

DRUGS (2)
  1. TOPIRAMATE. [Suspect]
     Active Substance: TOPIRAMATE
     Indication: NEONATAL SEIZURE
     Route: 048
  2. TOPIRAMATE. [Suspect]
     Active Substance: TOPIRAMATE
     Indication: NEONATAL SEIZURE
     Route: 048

REACTIONS (1)
  - Product use issue [Unknown]
